FAERS Safety Report 18097613 (Version 1)
Quarter: 2020Q3

REPORT INFORMATION
  Report Type: Spontaneous
  Country: US (occurrence: US)
  Receive Date: 20200731
  Receipt Date: 20200731
  Transmission Date: 20201103
  Serious: Yes (Life-Threatening, Hospitalization)
  Sender: FDA-Public Use
  Company Number: US-MYLANLABS-2020M1068334

PATIENT
  Age: 52 Year
  Sex: Female

DRUGS (3)
  1. METOPROLOL. [Suspect]
     Active Substance: METOPROLOL
     Indication: HYPERTENSION
     Route: 042
  2. CLONIDINE. [Concomitant]
     Active Substance: CLONIDINE
     Indication: HOT FLUSH
     Dosage: 0.1 MILLIGRAM
     Route: 065
  3. ST JOHN^S WORT [Concomitant]
     Active Substance: ST. JOHN^S WORT
     Indication: ANXIETY
     Route: 065

REACTIONS (9)
  - Vasoconstriction [Recovering/Resolving]
  - Respiratory disorder [Recovering/Resolving]
  - Respiratory distress [Recovering/Resolving]
  - Systolic dysfunction [Recovered/Resolved]
  - Pulmonary oedema [Recovering/Resolving]
  - Cardiogenic shock [Recovering/Resolving]
  - Increased ventricular afterload [Recovering/Resolving]
  - Hypertension [Recovering/Resolving]
  - Sinus tachycardia [Recovering/Resolving]
